FAERS Safety Report 9906660 (Version 1)
Quarter: 2014Q1

REPORT INFORMATION
  Report Type: Spontaneous
  Country: US (occurrence: US)
  Receive Date: 20140218
  Receipt Date: 20140218
  Transmission Date: 20141002
  Serious: Yes (Other)
  Sender: FDA-Public Use
  Company Number: US-PFIZER INC-2014042684

PATIENT
  Age: 23 Year
  Sex: Female
  Weight: 113 kg

DRUGS (1)
  1. EFFEXOR XR [Suspect]
     Indication: SCHIZOPHRENIA
     Dosage: 150 MG, 1X/DAY
     Route: 048
     Dates: start: 201310, end: 201401

REACTIONS (7)
  - Suicidal ideation [Not Recovered/Not Resolved]
  - Mental disorder [Not Recovered/Not Resolved]
  - Abnormal behaviour [Not Recovered/Not Resolved]
  - Anger [Not Recovered/Not Resolved]
  - Hostility [Not Recovered/Not Resolved]
  - Weight increased [Unknown]
  - Off label use [Not Recovered/Not Resolved]
